FAERS Safety Report 25345655 (Version 3)
Quarter: 2025Q3

REPORT INFORMATION
  Report Type: Spontaneous
  Country: GB (occurrence: GB)
  Receive Date: 20250522
  Receipt Date: 20250826
  Transmission Date: 20251021
  Serious: Yes (Hospitalization, Other)
  Sender: NOVARTIS
  Company Number: GB-SANDOZ-SDZ2025GB032967

PATIENT
  Age: 3 Decade
  Sex: Male

DRUGS (1)
  1. FINGOLIMOD [Suspect]
     Active Substance: FINGOLIMOD
     Indication: Relapsing-remitting multiple sclerosis
     Route: 048

REACTIONS (2)
  - Choroiditis [Recovered/Resolved]
  - Osseous cryptococcosis [Recovered/Resolved]
